FAERS Safety Report 17061710 (Version 1)
Quarter: 2019Q4

REPORT INFORMATION
  Report Type: Report from Study
  Country: CA (occurrence: CA)
  Receive Date: 20191121
  Receipt Date: 20191121
  Transmission Date: 20200122
  Serious: Yes (Life-Threatening)
  Sender: FDA-Public Use
  Company Number: CA-HLSUS-2019-CA-001580

PATIENT
  Age: 32 Year
  Sex: Male
  Weight: 114 kg

DRUGS (1)
  1. CLOZAPINE. [Suspect]
     Active Substance: CLOZAPINE
     Indication: SCHIZOPHRENIA
     Dosage: 50MG 1 EVERY 1 DAY
     Route: 048

REACTIONS (3)
  - Ventricular extrasystoles [Recovered/Resolved]
  - Electrocardiogram QT prolonged [Unknown]
  - Tachycardia [Unknown]
